FAERS Safety Report 8485711-3 (Version None)
Quarter: 2012Q3

REPORT INFORMATION
  Report Type: 
  Country: None (occurrence: None)
  Receive Date: 20120703
  Receipt Date: 20120619
  Transmission Date: 20120928
  Serious: Yes (Death, Hospitalization)
  Sender: FDA-Public Use
  Company Number: DE-CELGENEUS-062-50794-12060180

PATIENT
  Age: 68 Year
  Sex: Female

DRUGS (9)
  1. METOCLOPRAMIDE [Concomitant]
     Dosage: 80
     Route: 065
  2. ASPIRIN [Concomitant]
     Route: 065
  3. COTRIM DS [Concomitant]
     Indication: ANTIBIOTIC PROPHYLAXIS
     Route: 065
  4. FUROSEMIDE [Concomitant]
     Dosage: 20 MILLIGRAM
     Route: 065
  5. AMPHOTERICIN B [Concomitant]
     Route: 065
  6. VIDAZA [Suspect]
     Indication: MYELODYSPLASTIC SYNDROME
     Dosage: 75 MILLIGRAM/SQ. METER
     Route: 058
     Dates: start: 20111114, end: 20120302
  7. PANTOPRAZOLE [Concomitant]
     Dosage: 20 MILLIGRAM
     Route: 065
  8. PALLADONE [Concomitant]
     Dosage: 8 MILLIGRAM
     Route: 065
  9. IRBESARTAN AND HYDROCHLOROTHIAZIDE [Concomitant]
     Dosage: 150/12.5
     Route: 065

REACTIONS (1)
  - SEPSIS [None]
